FAERS Safety Report 9927847 (Version 1)
Quarter: 2014Q1

REPORT INFORMATION
  Report Type: Report from Study
  Country: GB (occurrence: GB)
  Receive Date: 20140227
  Receipt Date: 20140227
  Transmission Date: 20141002
  Serious: Yes (Other)
  Sender: FDA-Public Use
  Company Number: GB-JNJFOC-20140212390

PATIENT
  Age: 60 Year
  Sex: Male
  Weight: 139 kg

DRUGS (6)
  1. STELARA [Suspect]
     Indication: PSORIASIS
     Route: 058
     Dates: start: 20100205
  2. AMLODIPINE [Concomitant]
     Route: 065
     Dates: start: 20111201
  3. ASPIRIN [Concomitant]
     Route: 065
     Dates: start: 19990101
  4. SIMVASTATIN [Concomitant]
     Route: 065
     Dates: start: 20070101
  5. FUMARIC ACID [Concomitant]
     Route: 065
     Dates: start: 20080625, end: 20090701
  6. CICLOSPORIN [Concomitant]
     Route: 065
     Dates: start: 20100811

REACTIONS (1)
  - Basal cell carcinoma [Recovered/Resolved]
